FAERS Safety Report 8977647 (Version 1)
Quarter: 2012Q4

REPORT INFORMATION
  Report Type: 
  Country: RU (occurrence: RU)
  Receive Date: 20121220
  Receipt Date: 20121220
  Transmission Date: 20130627
  Serious: Yes (Other)
  Sender: FDA-Public Use
  Company Number: RU-VIIV HEALTHCARE LIMITED-B0853400A

PATIENT
  Sex: Male

DRUGS (4)
  1. ZIAGEN [Suspect]
     Indication: HIV INFECTION
     Dosage: 600MG per day
     Route: 048
     Dates: start: 2012
  2. HEPTOVIR [Suspect]
     Indication: HIV INFECTION
     Dosage: 300MG per day
     Route: 048
     Dates: start: 2012
  3. REYATAZ [Suspect]
     Indication: HIV INFECTION
     Dosage: 400MG per day
     Route: 048
     Dates: start: 2012
  4. RITONAVIR [Suspect]
     Indication: HIV INFECTION
     Dosage: 200MG per day
     Route: 048
     Dates: start: 2012

REACTIONS (7)
  - Angina pectoris [Unknown]
  - Tachycardia [Unknown]
  - Asthenia [Unknown]
  - Chills [Unknown]
  - Body temperature decreased [Unknown]
  - Vomiting [Unknown]
  - Headache [Unknown]
